FAERS Safety Report 21891153 (Version 1)
Quarter: 2023Q1

REPORT INFORMATION
  Report Type: Spontaneous
  Country: IT (occurrence: IT)
  Receive Date: 20230120
  Receipt Date: 20230120
  Transmission Date: 20230418
  Serious: Yes (Other)
  Sender: FDA-Public Use
  Company Number: IT-MYLANLABS-2023M1006417

PATIENT
  Age: 66 Year
  Sex: Female

DRUGS (5)
  1. OXALIPLATIN [Suspect]
     Active Substance: OXALIPLATIN
     Indication: Pancreatic carcinoma metastatic
     Dosage: UNK, FIRST-LINE CHEMOTHERAPY WITH FOLFOX REGIMEN
     Route: 065
     Dates: start: 202001
  2. FLUOROURACIL [Suspect]
     Active Substance: FLUOROURACIL
     Indication: Pancreatic carcinoma metastatic
     Dosage: UNK, FIRST-LINE CHEMOTHERAPY WITH FOLFOX REGIMEN
     Route: 065
     Dates: start: 202001
  3. FLUOROURACIL [Suspect]
     Active Substance: FLUOROURACIL
     Dosage: UNK,LATER, DRUG WAS GIVEN AS A PART OF FOLFIRI REGIMEN IN THE THIRD LINE
     Route: 065
     Dates: start: 202001
  4. LEUCOVORIN [Suspect]
     Active Substance: LEUCOVORIN
     Indication: Pancreatic carcinoma metastatic
     Dosage: UNK, FIRST-LINE CHEMOTHERAPY WITH FOLFOX REGIMEN
     Route: 065
     Dates: start: 202001
  5. LEUCOVORIN [Suspect]
     Active Substance: LEUCOVORIN
     Dosage: LATER, DRUG WAS GIVEN AS A PART OF FOLFIRI REGIMEN IN THE THIRD LINE
     Route: 065
     Dates: start: 202001

REACTIONS (2)
  - Disease progression [Unknown]
  - Drug ineffective [Unknown]

NARRATIVE: CASE EVENT DATE: 20200101
